FAERS Safety Report 14020312 (Version 5)
Quarter: 2017Q4

REPORT INFORMATION
  Report Type: Spontaneous
  Country: FR (occurrence: FR)
  Receive Date: 20170928
  Receipt Date: 20171222
  Transmission Date: 20180321
  Serious: Yes (Hospitalization, Other)
  Sender: FDA-Public Use
  Company Number: FR-TEVA-808972ROM

PATIENT
  Age: 42 Year
  Sex: Male

DRUGS (5)
  1. OXALIPLATIN. [Suspect]
     Active Substance: OXALIPLATIN
     Indication: CHEMOTHERAPY
  2. FLUOROURACIL. [Suspect]
     Active Substance: FLUOROURACIL
     Indication: CHEMOTHERAPY
     Dosage: 1200MG/M2 (5500 MG OF TOTAL DOSE IN 140ML OF SODIUM)
     Route: 050
  3. OXALIPLATIN. [Suspect]
     Active Substance: OXALIPLATIN
     Indication: OESOPHAGEAL ADENOCARCINOMA
     Dosage: 85MG/M2 (190MG OF TOTAL DOSE IN 500ML OF 5% GLUCOSE)
     Route: 050
  4. FLUOROURACIL. [Suspect]
     Active Substance: FLUOROURACIL
     Indication: OESOPHAGEAL ADENOCARCINOMA
     Dosage: 400MG/M2 (920MG OF TOTAL BOLUS DOSE IN 100ML OF 5% GLUCOSE)
     Route: 050
  5. FOLINIC ACID [Concomitant]
     Active Substance: LEUCOVORIN
     Indication: OESOPHAGEAL ADENOCARCINOMA
     Route: 065

REACTIONS (4)
  - Catheter site extravasation [Recovered/Resolved]
  - Bronchospasm [Recovered/Resolved]
  - Dysphonia [Recovered/Resolved]
  - Cardiotoxicity [Recovered/Resolved]
